FAERS Safety Report 8087300-1 (Version None)
Quarter: 2012Q1

REPORT INFORMATION
  Report Type: 
  Country: None (occurrence: None)
  Receive Date: 20120128
  Receipt Date: 20110516
  Transmission Date: 20120608
  Serious: No
  Sender: FDA-Public Use
  Company Number: US-ABBOTT-11P-163-0726065-00

PATIENT
  Sex: Female

DRUGS (11)
  1. FENOFIBRATE [Concomitant]
     Indication: BLOOD TRIGLYCERIDES INCREASED
  2. VITAMIN D [Concomitant]
     Indication: VITAMIN SUPPLEMENTATION
  3. FISH OIL OMEGA 3 [Concomitant]
     Indication: PRODUCT USED FOR UNKNOWN INDICATION
     Dosage: 100MG DAILY
  4. ZYRTEC [Concomitant]
     Indication: SEASONAL ALLERGY
     Dosage: PRN
  5. HUMIRA [Suspect]
     Indication: CROHN'S DISEASE
     Dosage: DAY 1
     Route: 058
     Dates: start: 20110505
  6. PENTASA [Concomitant]
     Indication: CROHN'S DISEASE
  7. VENLAFAXINE HCL EXTENDED-RELEASE [Concomitant]
     Indication: PAIN
  8. NIACIN [Concomitant]
     Indication: VITAMIN SUPPLEMENTATION
  9. VITAMIN B-12 [Concomitant]
     Indication: VITAMIN SUPPLEMENTATION
     Dosage: EVERY THIRTY DAYS
  10. METOPROLOL TARTRATE [Concomitant]
     Indication: HEART RATE
     Dosage: 12.5MG DAILY
  11. CALCIUM WITH D+K [Concomitant]
     Indication: MINERAL SUPPLEMENTATION
     Dosage: 750MG DAILY

REACTIONS (1)
  - INJECTION SITE PAIN [None]
